FAERS Safety Report 5275013-0 (Version None)
Quarter: 2007Q1

REPORT INFORMATION
  Report Type: 
  Country: None (occurrence: None)
  Receive Date: 20070325
  Receipt Date: 20070314
  Transmission Date: 20070707
  Serious: Yes (Other)
  Sender: FDA-Public Use
  Company Number: AR-ABBOTT-07P-007-0362067-00

PATIENT
  Age: 68 Year
  Sex: Female

DRUGS (2)
  1. VALCOTE [Suspect]
     Indication: BIPOLAR DISORDER
     Route: 048
     Dates: start: 20041001, end: 20070219
  2. RISPERIDONE [Concomitant]
     Indication: BIPOLAR DISORDER
     Route: 048
     Dates: start: 20070115, end: 20070219

REACTIONS (1)
  - VENTRICULAR EXTRASYSTOLES [None]
